FAERS Safety Report 24657907 (Version 3)
Quarter: 2025Q3

REPORT INFORMATION
  Report Type: Report from Study
  Country: TH (occurrence: TH)
  Receive Date: 20241125
  Receipt Date: 20250804
  Transmission Date: 20251020
  Serious: Yes (Other)
  Sender: NOVARTIS
  Company Number: TH-002147023-NVSC2024TH224477

PATIENT
  Sex: Female
  Weight: 60 kg

DRUGS (5)
  1. KISQALI [Suspect]
     Active Substance: RIBOCICLIB SUCCINATE
     Indication: Breast cancer metastatic
     Dosage: 3 DOSAGE FORM, QD, AFTER BREAKFAST
     Route: 048
  2. KISQALI [Suspect]
     Active Substance: RIBOCICLIB SUCCINATE
     Dosage: 2 DOSAGE FORM, QD (AFTER BREAKFAST)
     Route: 048
  3. KISQALI [Suspect]
     Active Substance: RIBOCICLIB SUCCINATE
     Dosage: 1 DOSAGE FORM, QD (TABLETS)
     Route: 048
  4. KISQALI [Suspect]
     Active Substance: RIBOCICLIB SUCCINATE
     Dosage: 2 DOSAGE FORM, QD (TABLETS)
     Route: 048
  5. LETROZOLE [Suspect]
     Active Substance: LETROZOLE
     Indication: Product used for unknown indication
     Dosage: 1 DOSAGE FORM, QD, AFTER BREAKFAST
     Route: 048

REACTIONS (11)
  - Metastases to lung [Unknown]
  - Metastases to bone [Unknown]
  - Syncope [Unknown]
  - Electrocardiogram abnormal [Unknown]
  - Weight decreased [Unknown]
  - Glomerular filtration rate decreased [Unknown]
  - Heart rate irregular [Unknown]
  - Product administration error [Unknown]
  - Dyspnoea [Unknown]
  - Dry mouth [Unknown]
  - Dry skin [Unknown]
